FAERS Safety Report 9691417 (Version 3)
Quarter: 2013Q4

REPORT INFORMATION
  Report Type: Spontaneous
  Country: GB (occurrence: GB)
  Receive Date: 20131115
  Receipt Date: 20131202
  Transmission Date: 20140711
  Serious: Yes (Hospitalization)
  Sender: FDA-Public Use
  Company Number: PHFR2013GB005592

PATIENT
  Age: 5 Year
  Sex: Male

DRUGS (2)
  1. TEGRETOL [Suspect]
     Dosage: 100 MG, UNK
  2. TEGRETOL [Suspect]
     Dosage: 200 MG, UNK
     Dates: start: 20130928

REACTIONS (3)
  - Gastroenteritis [Recovered/Resolved]
  - Overdose [Unknown]
  - Incorrect dose administered [Recovered/Resolved]
